FAERS Safety Report 20805187 (Version 14)
Quarter: 2022Q4

REPORT INFORMATION
  Report Type: Report from Study
  Country: JP (occurrence: JP)
  Receive Date: 20220509
  Receipt Date: 20221219
  Transmission Date: 20230113
  Serious: Yes (Hospitalization, Other)
  Sender: FDA-Public Use
  Company Number: JP-TAKEDA-2022TJP045629

PATIENT
  Age: 58 Year
  Sex: Female

DRUGS (7)
  1. ICATIBANT [Suspect]
     Active Substance: ICATIBANT ACETATE
     Indication: Hereditary angioedema
     Dosage: 30 MILLIGRAM
     Route: 058
     Dates: start: 202204
  2. ICATIBANT [Suspect]
     Active Substance: ICATIBANT ACETATE
     Indication: Hereditary angioedema
     Dosage: 30 MILLIGRAM
     Route: 058
     Dates: start: 202204
  3. TAKHZYRO [Suspect]
     Active Substance: LANADELUMAB-FLYO
     Indication: Hereditary angioedema
     Dosage: 300 MILLIGRAM
     Route: 058
     Dates: start: 20220726, end: 20220726
  4. TAKHZYRO [Suspect]
     Active Substance: LANADELUMAB-FLYO
     Dosage: 300 MILLIGRAM
     Route: 058
     Dates: start: 20220809
  5. TAKHZYRO [Suspect]
     Active Substance: LANADELUMAB-FLYO
     Dosage: 300 MILLIGRAM
     Route: 058
     Dates: start: 20220920
  6. PREDONINE [Concomitant]
     Active Substance: PREDNISOLONE
     Indication: Urticaria
     Dosage: 5 MILLIGRAM/DAY
     Route: 048
  7. PREDONINE [Concomitant]
     Active Substance: PREDNISOLONE
     Dosage: 4 MILLIGRAM
     Route: 048

REACTIONS (31)
  - Tooth injury [Unknown]
  - Ascites [Unknown]
  - Post procedural haemorrhage [Unknown]
  - Coronavirus infection [Recovering/Resolving]
  - Drug hypersensitivity [Unknown]
  - Contusion [Unknown]
  - Hereditary angioedema [Unknown]
  - Injection site pain [Unknown]
  - Discouragement [Unknown]
  - Physical deconditioning [Unknown]
  - Malaise [Unknown]
  - Osteoporosis [Unknown]
  - Teeth brittle [Unknown]
  - Psychiatric symptom [Unknown]
  - Procedural pain [Unknown]
  - Injection site erythema [Unknown]
  - Myalgia [Unknown]
  - Heat exhaustion [Unknown]
  - Injection site swelling [Unknown]
  - Decreased appetite [Unknown]
  - Stress [Unknown]
  - Injection site discolouration [Unknown]
  - Miliaria [Unknown]
  - Purpura [Unknown]
  - Administration site extravasation [Unknown]
  - Joint effusion [Unknown]
  - Hypoaesthesia [Unknown]
  - Arthralgia [Unknown]
  - Osteoporosis [Unknown]
  - Injection site pain [Unknown]
  - Injection site discolouration [Recovered/Resolved]

NARRATIVE: CASE EVENT DATE: 20220809
